FAERS Safety Report 23577390 (Version 3)
Quarter: 2024Q2

REPORT INFORMATION
  Report Type: Spontaneous
  Country: US (occurrence: US)
  Receive Date: 20240228
  Receipt Date: 20240412
  Transmission Date: 20240716
  Serious: Yes (Hospitalization, Other)
  Sender: FDA-Public Use
  Company Number: US-PFIZER INC-PV202400027109

PATIENT
  Age: 51 Year
  Sex: Male

DRUGS (1)
  1. INLYTA [Suspect]
     Active Substance: AXITINIB
     Indication: Neoplasm malignant
     Dosage: UNK

REACTIONS (7)
  - Hypervolaemia [Unknown]
  - Neuropathy peripheral [Unknown]
  - Dialysis [Unknown]
  - Fatigue [Unknown]
  - Irritability [Unknown]
  - Pain [Unknown]
  - Somnolence [Unknown]
